FAERS Safety Report 4465421-X (Version None)
Quarter: 2004Q4

REPORT INFORMATION
  Report Type: 
  Country: None (occurrence: None)
  Receive Date: 20041004
  Receipt Date: 20010816
  Transmission Date: 20050328
  Serious: Yes (Other)
  Sender: FDA-Public Use
  Company Number: GB-GLAXOSMITHKLINE-B0117745A

PATIENT
  Age: 64 Year
  Sex: Male
  Weight: 74.9 kg

DRUGS (7)
  1. LAMIVUDINE [Suspect]
     Dosage: 100MG PER DAY
     Route: 048
     Dates: start: 19970916
  2. AZATHIOPRINE [Suspect]
  3. NEORAL [Suspect]
  4. BECOTIDE [Concomitant]
     Indication: ASTHMA
  5. VENTOLIN [Concomitant]
     Indication: ASTHMA
  6. AMOXICILLIN [Concomitant]
  7. VALACYCLOVIR HCL [Concomitant]
     Indication: HERPES ZOSTER

REACTIONS (1)
  - SQUAMOUS CELL CARCINOMA [None]
